FAERS Safety Report 6316522-2 (Version None)
Quarter: 2009Q3

REPORT INFORMATION
  Report Type: 
  Country: None (occurrence: None)
  Receive Date: 20090820
  Receipt Date: 20090813
  Transmission Date: 20100115
  Serious: Yes (Hospitalization)
  Sender: FDA-Public Use
  Company Number: BR-WATSON-2009-06584

PATIENT
  Age: 52 Year
  Sex: Male

DRUGS (3)
  1. PREDNISONE (WATSON LABORATORIES) [Suspect]
     Indication: PEMPHIGOID
     Dosage: UNK
  2. CYCLOPHOSPHAMIDE [Suspect]
     Indication: PEMPHIGOID
  3. AZATHIOPRINE [Suspect]
     Indication: PEMPHIGOID

REACTIONS (6)
  - CENTRAL NERVOUS SYSTEM ABSCESS [None]
  - EFFUSION [None]
  - FRACTURE [None]
  - HERPES ZOSTER [None]
  - LYMPHADENOPATHY [None]
  - MENINGITIS [None]
